FAERS Safety Report 21952662 (Version 1)
Quarter: 2023Q1

REPORT INFORMATION
  Report Type: Spontaneous
  Country: US (occurrence: US)
  Receive Date: 20230203
  Receipt Date: 20230203
  Transmission Date: 20230417
  Serious: Yes (Other)
  Sender: FDA-Public Use
  Company Number: US-MALLINCKRODT-T202300709

PATIENT
  Age: 6 Decade
  Sex: Male

DRUGS (9)
  1. UVADEX [Suspect]
     Active Substance: METHOXSALEN
     Indication: Chronic graft versus host disease in skin
     Dosage: UNK, EXTRACORPOREAL (LONG-TERM)
     Route: 050
  2. UVADEX [Suspect]
     Active Substance: METHOXSALEN
     Indication: Chronic graft versus host disease in eye
  3. UVADEX [Suspect]
     Active Substance: METHOXSALEN
     Indication: Chronic graft versus host disease in intestine
  4. TACROLIMUS [Concomitant]
     Active Substance: TACROLIMUS
     Indication: Chronic graft versus host disease in skin
     Dosage: UNK
     Route: 065
  5. TACROLIMUS [Concomitant]
     Active Substance: TACROLIMUS
     Indication: Chronic graft versus host disease in eye
  6. TACROLIMUS [Concomitant]
     Active Substance: TACROLIMUS
     Indication: Chronic graft versus host disease in intestine
  7. METHOTREXATE [Concomitant]
     Active Substance: METHOTREXATE
     Indication: Chronic graft versus host disease in skin
     Dosage: UNK
     Route: 065
  8. METHOTREXATE [Concomitant]
     Active Substance: METHOTREXATE
     Indication: Chronic graft versus host disease in eye
  9. METHOTREXATE [Concomitant]
     Active Substance: METHOTREXATE
     Indication: Chronic graft versus host disease in intestine

REACTIONS (2)
  - Angiosarcoma [Not Recovered/Not Resolved]
  - Product use in unapproved indication [Unknown]
